FAERS Safety Report 7171611-8 (Version None)
Quarter: 2010Q4

REPORT INFORMATION
  Report Type: 
  Country: None (occurrence: None)
  Receive Date: 20101217
  Receipt Date: 20101210
  Transmission Date: 20110411
  Serious: Yes (Death)
  Sender: FDA-Public Use
  Company Number: GR-ABBOTT-10P-066-0691552-00

PATIENT
  Age: 66 Year
  Sex: Male
  Weight: 75 kg

DRUGS (10)
  1. ZURCAZOL IV [Suspect]
     Indication: PRODUCT USED FOR UNKNOWN INDICATION
     Route: 042
  2. PIPERACILLIN SODIUM W/TAZOBACTAM [Suspect]
     Indication: ABDOMINAL INFECTION
     Route: 042
     Dates: start: 20100609, end: 20100614
  3. PIPERACILLIN SODIUM W/TAZOBACTAM [Suspect]
     Route: 042
     Dates: start: 20100703, end: 20100705
  4. METRONIDAZOLE [Suspect]
     Indication: ABDOMINAL INFECTION
     Route: 042
     Dates: start: 20100615, end: 20100617
  5. METRONIDAZOLE [Suspect]
     Route: 042
     Dates: start: 20100622, end: 20100629
  6. CLAVULANIC ACID W/TICARCILLIN [Suspect]
     Indication: ABDOMINAL INFECTION
     Route: 042
     Dates: start: 20100615, end: 20100618
  7. CLAVULANIC ACID W/TICARCILLIN [Suspect]
     Route: 042
     Dates: start: 20100619, end: 20100625
  8. CLAVULANIC ACID W/TICARCILLIN [Suspect]
     Route: 042
     Dates: start: 20100626, end: 20100702
  9. PANCORAN [Suspect]
     Indication: PRODUCT USED FOR UNKNOWN INDICATION
     Route: 062
  10. INNOHEP [Suspect]
     Indication: PRODUCT USED FOR UNKNOWN INDICATION
     Route: 058

REACTIONS (1)
  - DEATH [None]
